FAERS Safety Report 5592818-7 (Version None)
Quarter: 2008Q1

REPORT INFORMATION
  Report Type: 
  Country: None (occurrence: None)
  Receive Date: 20080116
  Receipt Date: 20080110
  Transmission Date: 20080703
  Serious: Yes (Hospitalization)
  Sender: FDA-Public Use
  Company Number: KR-ABBOTT-08P-090-0432893-00

PATIENT
  Age: 43 Year
  Sex: Male

DRUGS (1)
  1. ZEMPLAR [Suspect]
     Indication: DRUG USE FOR UNKNOWN INDICATION
     Dates: end: 20071101

REACTIONS (2)
  - ATRIAL FIBRILLATION [None]
  - CHEST PAIN [None]
